FAERS Safety Report 5586897-0 (Version None)
Quarter: 2008Q1

REPORT INFORMATION
  Report Type: 
  Country: None (occurrence: None)
  Receive Date: 20080108
  Receipt Date: 20080108
  Transmission Date: 20080703
  Serious: No
  Sender: FDA-Public Use
  Company Number: None

PATIENT
  Age: 47 Year
  Sex: Female
  Weight: 52.1637 kg

DRUGS (2)
  1. BUDEPRION XL 300MG TEVA [Suspect]
     Indication: ATTENTION DEFICIT/HYPERACTIVITY DISORDER
     Dosage: 1    1 IN AM PO
     Route: 048
     Dates: start: 20071213, end: 20080106
  2. BUDEPRION XL 300MG TEVA [Suspect]
     Indication: DEPRESSION
     Dosage: 1    1 IN AM PO
     Route: 048
     Dates: start: 20071213, end: 20080106

REACTIONS (6)
  - ANOREXIA [None]
  - CRYING [None]
  - DEPRESSION [None]
  - DISTURBANCE IN ATTENTION [None]
  - FEELING ABNORMAL [None]
  - NAUSEA [None]
